FAERS Safety Report 16004672 (Version 2)
Quarter: 2019Q1

REPORT INFORMATION
  Report Type: Spontaneous
  Country: US (occurrence: US)
  Receive Date: 20190226
  Receipt Date: 20190307
  Transmission Date: 20190418
  Serious: No
  Sender: FDA-Public Use
  Company Number: US-TEVA-2019-US-1008888

PATIENT
  Sex: Female

DRUGS (2)
  1. AUSTEDO [Suspect]
     Active Substance: DEUTETRABENAZINE
     Dosage: 12 MILLIGRAM DAILY;
     Route: 048
     Dates: start: 20190101
  2. AUSTEDO [Suspect]
     Active Substance: DEUTETRABENAZINE
     Dosage: 24 MILLIGRAM DAILY; PATIENT IS TAKING 2 TABLETS PER DAY RELATED TO SYMPTOMS.
     Route: 048

REACTIONS (1)
  - Intentional product use issue [Unknown]
